FAERS Safety Report 19479636 (Version 5)
Quarter: 2022Q2

REPORT INFORMATION
  Report Type: Report from Study
  Country: US (occurrence: US)
  Receive Date: 20210630
  Receipt Date: 20220526
  Transmission Date: 20220721
  Serious: Yes (Other)
  Sender: FDA-Public Use
  Company Number: US-TAKEDA-2021TUS025417

PATIENT
  Age: 54 Year
  Sex: Female
  Weight: 81.179 kg

DRUGS (35)
  1. HUMAN IMMUNOGLOBULIN G [Suspect]
     Active Substance: HUMAN IMMUNOGLOBULIN G
     Indication: Multiple sclerosis
     Dosage: 35 GRAM, Q3WEEKS
     Route: 042
     Dates: start: 20201120
  2. MODERNA COVID-19 VACCINE [Suspect]
     Active Substance: ELASOMERAN
     Indication: Immunisation
     Dosage: UNK
     Route: 065
  3. UBROGEPANT [Concomitant]
     Active Substance: UBROGEPANT
     Indication: Migraine
     Route: 065
  4. RESTASIS [Concomitant]
     Active Substance: CYCLOSPORINE
     Route: 065
  5. HYDROXYCHLOROQUINE [Concomitant]
     Active Substance: HYDROXYCHLOROQUINE
     Route: 065
  6. CYANOCOBALAMIN [Concomitant]
     Active Substance: CYANOCOBALAMIN
     Route: 065
  7. AMERGE [Concomitant]
     Active Substance: NARATRIPTAN HYDROCHLORIDE
     Route: 065
  8. METOPROLOL [Concomitant]
     Active Substance: METOPROLOL
     Route: 065
  9. PANTOPRAZOLE [Concomitant]
     Active Substance: PANTOPRAZOLE
     Route: 065
  10. WARFARIN [Concomitant]
     Active Substance: WARFARIN
     Route: 065
  11. FOLIC ACID [Concomitant]
     Active Substance: FOLIC ACID
     Route: 065
  12. ONDANSETRON [Concomitant]
     Active Substance: ONDANSETRON
     Route: 065
  13. TOPIRAMATE [Concomitant]
     Active Substance: TOPIRAMATE
     Route: 065
  14. SIMVASTATIN [Concomitant]
     Active Substance: SIMVASTATIN
     Route: 065
  15. AZELASTINE [Concomitant]
     Active Substance: AZELASTINE
     Route: 065
  16. LIOTHYRONINE [Concomitant]
     Active Substance: LIOTHYRONINE
     Route: 065
  17. DIPHENHYDRAMINE [Concomitant]
     Active Substance: DIPHENHYDRAMINE
     Route: 065
  18. LEVOCETIRIZINE [Concomitant]
     Active Substance: LEVOCETIRIZINE
     Route: 065
  19. CYCLOBENZAPRINE [Concomitant]
     Active Substance: CYCLOBENZAPRINE
     Route: 065
  20. LEVOTHYROXINE [Concomitant]
     Active Substance: LEVOTHYROXINE
     Route: 065
  21. AUBAGIO [Concomitant]
     Active Substance: TERIFLUNOMIDE
     Route: 065
  22. HYDROCODONE BITARTRATE AND ACETAMINOPHEN [Concomitant]
     Active Substance: ACETAMINOPHEN\HYDROCODONE BITARTRATE
     Route: 065
  23. ERGOCALCIFEROL [Concomitant]
     Active Substance: ERGOCALCIFEROL
     Route: 065
  24. ACETAMINOPHEN [Concomitant]
     Active Substance: ACETAMINOPHEN
     Route: 065
  25. LIDOCAINE [Concomitant]
     Active Substance: LIDOCAINE
     Route: 065
  26. SODIUM CHLORIDE [Concomitant]
     Active Substance: SODIUM CHLORIDE
     Route: 065
  27. EPINEPHRINE [Concomitant]
     Active Substance: EPINEPHRINE
     Route: 065
  28. NORCO [Concomitant]
     Active Substance: ACETAMINOPHEN\HYDROCODONE BITARTRATE
     Route: 065
  29. DIPHENHYDRAMINE [Concomitant]
     Active Substance: DIPHENHYDRAMINE
     Route: 065
  30. METOPROLOL SUCCINATE [Concomitant]
     Active Substance: METOPROLOL SUCCINATE
     Route: 065
  31. ONDANSETRON HCL [Concomitant]
     Active Substance: ONDANSETRON HYDROCHLORIDE
     Route: 065
  32. HYDROXYCHLOROQUINE SULFATE [Concomitant]
     Active Substance: HYDROXYCHLOROQUINE SULFATE
     Route: 065
  33. AZELASTINE HYDROCHLORIDE [Concomitant]
     Active Substance: AZELASTINE HYDROCHLORIDE
     Route: 065
  34. LIOTHYRONINE SODIUM [Concomitant]
     Active Substance: LIOTHYRONINE SODIUM
     Route: 065
  35. LEVOTHYROXINE SODIUM [Concomitant]
     Active Substance: LEVOTHYROXINE SODIUM
     Route: 065

REACTIONS (12)
  - Haemorrhage [Unknown]
  - Multiple sclerosis [Unknown]
  - Feeling abnormal [Unknown]
  - COVID-19 [Unknown]
  - Weight decreased [Unknown]
  - Malaise [Unknown]
  - Viral infection [Unknown]
  - Condition aggravated [Unknown]
  - Physical abuse [Unknown]
  - Migraine [Unknown]
  - Off label use [Unknown]
  - Product dose omission issue [Unknown]

NARRATIVE: CASE EVENT DATE: 20220516
